FAERS Safety Report 7303970-7 (Version None)
Quarter: 2011Q1

REPORT INFORMATION
  Report Type: 
  Country: None (occurrence: None)
  Receive Date: 20110221
  Receipt Date: 20110218
  Transmission Date: 20110831
  Serious: Yes (Life-Threatening, Hospitalization)
  Sender: FDA-Public Use
  Company Number: GB-MPIJNJ-2011-00678

PATIENT

DRUGS (3)
  1. DOXORUBICIN [Suspect]
     Indication: MULTIPLE MYELOMA
     Dosage: 72 MG, UNK
     Route: 042
     Dates: start: 20110110, end: 20110131
  2. DEXAMETHASONE [Suspect]
     Indication: MULTIPLE MYELOMA
     Dosage: 40 MG, UNK
     Route: 048
     Dates: start: 20110110, end: 20110203
  3. VELCADE [Suspect]
     Indication: MULTIPLE MYELOMA
     Dosage: 2.6 MG, UNK
     Route: 042
     Dates: start: 20110110, end: 20110210

REACTIONS (2)
  - DIARRHOEA [None]
  - RENAL FAILURE ACUTE [None]
